FAERS Safety Report 4574428-3 (Version None)
Quarter: 2005Q1

REPORT INFORMATION
  Report Type: 
  Country: None (occurrence: None)
  Receive Date: 20050208
  Receipt Date: 20050125
  Transmission Date: 20050727
  Serious: Yes (Life-Threatening, Hospitalization, Disabling, Other)
  Sender: FDA-Public Use
  Company Number: GB-GLAXOSMITHKLINE-B0369175A

PATIENT
  Age: 29 Year
  Sex: Female
  Weight: 55 kg

DRUGS (3)
  1. ACETAMINOPHEN [Suspect]
     Route: 048
  2. MIRTAZAPINE [Suspect]
     Indication: DEPRESSION
     Dates: start: 20050118, end: 20050119
  3. ZOPICLONE [Concomitant]
     Dates: end: 20041026

REACTIONS (3)
  - JAUNDICE [None]
  - OVERDOSE [None]
  - PRURITUS [None]
